FAERS Safety Report 23820269 (Version 3)
Quarter: 2024Q3

REPORT INFORMATION
  Report Type: Spontaneous
  Country: FR (occurrence: FR)
  Receive Date: 20240506
  Receipt Date: 20240815
  Transmission Date: 20241016
  Serious: Yes (Hospitalization, Other)
  Sender: PFIZER
  Company Number: None

PATIENT
  Age: 33 Year
  Sex: Male
  Weight: 84 kg

DRUGS (6)
  1. PACLITAXEL [Suspect]
     Active Substance: PACLITAXEL
     Indication: Testicular germ cell tumour
     Dosage: UNK
     Route: 042
     Dates: start: 2010, end: 2010
  2. OXALIPLATIN [Suspect]
     Active Substance: OXALIPLATIN
     Indication: Testicular germ cell tumour
     Dosage: UNK
     Route: 042
     Dates: start: 2010, end: 2010
  3. ETOPOSIDE [Suspect]
     Active Substance: ETOPOSIDE
     Indication: Testicular germ cell tumour
     Dosage: UNK
     Route: 042
     Dates: start: 2010, end: 2010
  4. IFOSFAMIDE [Suspect]
     Active Substance: IFOSFAMIDE
     Indication: Testicular germ cell tumour
     Dosage: UNK
     Route: 042
     Dates: start: 2010, end: 2010
  5. CISPLATIN [Suspect]
     Active Substance: CISPLATIN
     Indication: Testicular germ cell tumour
     Dosage: UNK
     Route: 042
     Dates: start: 2010, end: 2010
  6. BLEOMYCIN [Suspect]
     Active Substance: BLEOMYCIN SULFATE
     Indication: Testicular germ cell tumour
     Dosage: UNK
     Route: 042
     Dates: start: 2010, end: 2010

REACTIONS (2)
  - Ischaemic stroke [Recovering/Resolving]
  - Off label use [Unknown]

NARRATIVE: CASE EVENT DATE: 20240327
